FAERS Safety Report 5187337-6 (Version None)
Quarter: 2006Q4

REPORT INFORMATION
  Report Type: 
  Country: None (occurrence: None)
  Receive Date: 20061214
  Receipt Date: 20061205
  Transmission Date: 20070319
  Serious: Yes (Other)
  Sender: FDA-Public Use
  Company Number: 2006142941

PATIENT
  Age: 40 Year
  Sex: Male

DRUGS (2)
  1. LIPITOR [Suspect]
     Dosage: 20 MG (20 MG,1 IN 1 D), ORAL
     Route: 048
     Dates: start: 20040101, end: 20060101
  2. MIRAPEX [Suspect]
     Indication: RESTLESS LEGS SYNDROME
     Dates: start: 20060101, end: 20060101

REACTIONS (4)
  - BLOOD CREATINE PHOSPHOKINASE INCREASED [None]
  - HYPOTHYROIDISM [None]
  - LOW DENSITY LIPOPROTEIN INCREASED [None]
  - RESTLESS LEGS SYNDROME [None]
